FAERS Safety Report 25193685 (Version 3)
Quarter: 2025Q4

REPORT INFORMATION
  Report Type: Spontaneous
  Country: JP (occurrence: JP)
  Receive Date: 20250414
  Receipt Date: 20251211
  Transmission Date: 20260118
  Serious: Yes (Hospitalization, Other)
  Sender: ELI LILLY AND COMPANY
  Company Number: JP-ELI_LILLY_AND_COMPANY-JP202504009109

PATIENT
  Age: 69 Year
  Sex: Male
  Weight: 49 kg

DRUGS (4)
  1. DULOXETINE HYDROCHLORIDE [Suspect]
     Active Substance: DULOXETINE HYDROCHLORIDE
     Indication: Back pain
     Dosage: 40 MG, DAILY
     Route: 048
  2. SODIUM FERROUS CITRATE [Suspect]
     Active Substance: SODIUM FERROUS CITRATE
     Indication: Product used for unknown indication
     Dosage: 50 MG
     Route: 048
  3. DIGOXIN [Concomitant]
     Active Substance: DIGOXIN
     Dosage: UNK, BID
     Route: 048
     Dates: end: 20250319
  4. CARVEDILOL [Concomitant]
     Active Substance: CARVEDILOL
     Dosage: UNK UNK, DAILY
     Dates: end: 20250319

REACTIONS (9)
  - Cyanosis [Unknown]
  - General physical health deterioration [Unknown]
  - Hypophagia [Recovering/Resolving]
  - Decreased appetite [Not Recovered/Not Resolved]
  - Hyponatraemia [Unknown]
  - Bradycardia [Unknown]
  - Diarrhoea [Unknown]
  - Hypokalaemia [Unknown]
  - Blood potassium increased [Unknown]

NARRATIVE: CASE EVENT DATE: 20250218
